FAERS Safety Report 7980798-6 (Version None)
Quarter: 2011Q4

REPORT INFORMATION
  Report Type: 
  Country: None (occurrence: None)
  Receive Date: 20111214
  Receipt Date: 20110909
  Transmission Date: 20120403
  Serious: No
  Sender: FDA-Public Use
  Company Number: US-BAUSCH-2011BL005765

PATIENT
  Age: 62 Year
  Sex: Male

DRUGS (6)
  1. BESIVANCE [Suspect]
     Indication: PREOPERATIVE CARE
     Route: 047
     Dates: start: 20110820, end: 20110830
  2. OMEPRAZOLE [Concomitant]
  3. PAROXETINE HCL [Concomitant]
  4. CLONAZEPAM [Concomitant]
  5. CENTRUM [Concomitant]
  6. UROXATRAL [Interacting]
     Indication: PRODUCT USED FOR UNKNOWN INDICATION
     Route: 048
     Dates: start: 20101124, end: 20110824

REACTIONS (1)
  - BLOOD URINE PRESENT [None]
